FAERS Safety Report 5347392-7 (Version None)
Quarter: 2007Q2

REPORT INFORMATION
  Report Type: 
  Country: None (occurrence: None)
  Receive Date: 20070606
  Receipt Date: 20070525
  Transmission Date: 20071010
  Serious: No
  Sender: FDA-Public Use
  Company Number: FR-JNJFOC-20070400527

PATIENT
  Age: 76 Year
  Sex: Female
  Weight: 60 kg

DRUGS (7)
  1. REMICADE [Suspect]
     Route: 042
  2. REMICADE [Suspect]
     Route: 042
  3. REMICADE [Suspect]
     Indication: ANKYLOSING SPONDYLITIS
     Route: 042
  4. VOLTAREN [Suspect]
     Indication: DRUG USE FOR UNKNOWN INDICATION
  5. DI-ANTALVIC [Concomitant]
  6. DI-ANTALVIC [Concomitant]
     Indication: HYPERTENSION
  7. BETA BLOCKER EYE LOTION [Concomitant]
     Route: 047

REACTIONS (12)
  - ABDOMINAL DISTENSION [None]
  - ABDOMINAL PAIN [None]
  - BALANCE DISORDER [None]
  - DEPRESSION [None]
  - GASTRIC ULCER [None]
  - HOT FLUSH [None]
  - INSOMNIA [None]
  - JOINT SWELLING [None]
  - OEDEMA PERIPHERAL [None]
  - RENAL PAIN [None]
  - ROSACEA [None]
  - SINUSITIS [None]
